FAERS Safety Report 7040291-4 (Version None)
Quarter: 2010Q4

REPORT INFORMATION
  Report Type: 
  Country: None (occurrence: None)
  Receive Date: 20101012
  Receipt Date: 20101001
  Transmission Date: 20110411
  Serious: Yes (Other)
  Sender: FDA-Public Use
  Company Number: DK-PFIZER INC-2010124919

PATIENT
  Age: 68 Year
  Sex: Male

DRUGS (3)
  1. ZARATOR [Suspect]
     Dosage: 20 MG, UNK
  2. ACETYLSALICYLIC ACID [Concomitant]
     Dosage: 75 MG, UNK
  3. PERINDOPRIL ERBUMINE [Concomitant]
     Dosage: 5 MG, UNK

REACTIONS (2)
  - DYSPHAGIA [None]
  - MYOPATHY [None]
